FAERS Safety Report 16079312 (Version 1)
Quarter: 2019Q1

REPORT INFORMATION
  Report Type: Spontaneous
  Country: DE (occurrence: DE)
  Receive Date: 20190315
  Receipt Date: 20190315
  Transmission Date: 20190418
  Serious: Yes (Other)
  Sender: FDA-Public Use
  Company Number: DE-BAYER-2019-046749

PATIENT
  Age: 35 Year
  Sex: Female
  Weight: 75 kg

DRUGS (1)
  1. MIRENA [Suspect]
     Active Substance: LEVONORGESTREL
     Dosage: 20 MCG/24HR, CONT
     Route: 015
     Dates: start: 20150611, end: 20180727

REACTIONS (8)
  - Weight increased [Recovering/Resolving]
  - Skin disorder [Not Recovered/Not Resolved]
  - Mental disorder [Not Recovered/Not Resolved]
  - Neck pain [Recovering/Resolving]
  - Hyperhidrosis [Recovering/Resolving]
  - Adenoma benign [Recovering/Resolving]
  - Depression [Recovering/Resolving]
  - Hormone level abnormal [Recovering/Resolving]

NARRATIVE: CASE EVENT DATE: 20150611
